FAERS Safety Report 13020319 (Version 1)
Quarter: 2016Q4

REPORT INFORMATION
  Report Type: Spontaneous
  Country: SK (occurrence: SK)
  Receive Date: 20161212
  Receipt Date: 20161212
  Transmission Date: 20170207
  Serious: Yes (Hospitalization)
  Sender: FDA-Public Use
  Company Number: SK-BAUSCH-BL-2016-031336

PATIENT
  Age: 61 Year
  Sex: Female
  Weight: 62 kg

DRUGS (3)
  1. AFLAMIL [Concomitant]
     Indication: LUMBOSACRAL RADICULOPATHY
     Dates: start: 20160906, end: 20160909
  2. DICLOFENAC DUO [Suspect]
     Active Substance: DICLOFENAC SODIUM
     Indication: LUMBOSACRAL RADICULOPATHY
     Route: 048
     Dates: start: 20161003, end: 20161115
  3. DICLOFENAC [Concomitant]
     Active Substance: DICLOFENAC
     Indication: LUMBOSACRAL RADICULOPATHY
     Route: 048
     Dates: start: 20160909, end: 20161003

REACTIONS (2)
  - Gastric disorder [Recovered/Resolved]
  - Anaemia [Recovered/Resolved]

NARRATIVE: CASE EVENT DATE: 20161116
